FAERS Safety Report 16866351 (Version 1)
Quarter: 2019Q3

REPORT INFORMATION
  Report Type: Spontaneous
  Country: FR (occurrence: FR)
  Receive Date: 20190930
  Receipt Date: 20190930
  Transmission Date: 20191005
  Serious: Yes (Hospitalization, Disabling, Other)
  Sender: FDA-Public Use
  Company Number: FR-US-PROVELL PHARMACEUTICALS LLC-E2B_90069844

PATIENT
  Age: 20 Year
  Sex: Female
  Weight: 57 kg

DRUGS (8)
  1. GARDASIL [Concomitant]
     Active Substance: HUMAN PAPILLOMAVIRUS QUADRIVALENT (TYPES 6, 11, 16, AND 18) VACCINE, RECOMBINANT
     Route: 030
     Dates: start: 20120524
  2. GARDASIL [Suspect]
     Active Substance: HUMAN PAPILLOMAVIRUS QUADRIVALENT (TYPES 6, 11, 16, AND 18) VACCINE, RECOMBINANT
     Route: 030
     Dates: start: 20111111, end: 20120524
  3. LEVOTHYROX [Suspect]
     Active Substance: LEVOTHYROXINE
     Indication: PRODUCT USED FOR UNKNOWN INDICATION
  4. GARDASIL [Suspect]
     Active Substance: HUMAN PAPILLOMAVIRUS QUADRIVALENT (TYPES 6, 11, 16, AND 18) VACCINE, RECOMBINANT
     Indication: PROPHYLAXIS
     Route: 030
     Dates: start: 20111104
  5. GARDASIL [Suspect]
     Active Substance: HUMAN PAPILLOMAVIRUS QUADRIVALENT (TYPES 6, 11, 16, AND 18) VACCINE, RECOMBINANT
     Route: 030
     Dates: start: 20121023
  6. ENGERIX-B [Suspect]
     Active Substance: HEPATITIS B VIRUS SUBTYPE ADW2 HBSAG SURFACE PROTEIN ANTIGEN
     Indication: PROPHYLAXIS
     Route: 030
     Dates: start: 20120123, end: 20120123
  7. MENINGITEC [Suspect]
     Active Substance: NEISSERIA MENINGITIDIS GROUP C CAPSULAR POLYSACCHARIDE ANTIGEN
     Indication: PROPHYLAXIS
     Route: 030
     Dates: start: 20111219
  8. GARDASIL [Concomitant]
     Active Substance: HUMAN PAPILLOMAVIRUS QUADRIVALENT (TYPES 6, 11, 16, AND 18) VACCINE, RECOMBINANT
     Indication: PROPHYLAXIS
     Route: 030
     Dates: start: 20111111

REACTIONS (31)
  - Clonus [Unknown]
  - Pain in extremity [Unknown]
  - Leukoencephalopathy [Unknown]
  - Hemiparaesthesia [Unknown]
  - Fatigue [Unknown]
  - Motor dysfunction [Unknown]
  - Fine motor skill dysfunction [Unknown]
  - Optic neuritis [Unknown]
  - Dizziness [Unknown]
  - Movement disorder [Unknown]
  - Extrapyramidal disorder [Unknown]
  - Hypoaesthesia [Unknown]
  - Tertiary syphilis [Unknown]
  - Headache [Unknown]
  - Incontinence [Unknown]
  - Limb discomfort [Unknown]
  - Constipation [Unknown]
  - Decreased vibratory sense [Unknown]
  - Nausea [Unknown]
  - Relapsing-remitting multiple sclerosis [Unknown]
  - Chondrodynia [Unknown]
  - Alopecia [Unknown]
  - Dysmetria [Unknown]
  - Ataxia [Unknown]
  - Paraesthesia [Unknown]
  - Visual impairment [Unknown]
  - Aphasia [Unknown]
  - Demyelination [Unknown]
  - Memory impairment [Unknown]
  - Facial paralysis [Unknown]
  - Muscular weakness [Unknown]

NARRATIVE: CASE EVENT DATE: 201201
